FAERS Safety Report 9098365 (Version 2)
Quarter: 2013Q3

REPORT INFORMATION
  Report Type: Spontaneous
  Country: JP (occurrence: JP)
  Receive Date: 20130213
  Receipt Date: 20130812
  Transmission Date: 20140515
  Serious: Yes (Other)
  Sender: FDA-Public Use
  Company Number: CHNY2013JP000627

PATIENT
  Sex: Male

DRUGS (4)
  1. NICOTINELL TTS [Suspect]
     Dosage: 52.5 MG, QD
     Route: 062
     Dates: start: 20130207
  2. DEPAS [Concomitant]
     Indication: MENTAL DISORDER
     Dosage: UNK, UNK
     Route: 048
  3. AMOXAN [Concomitant]
     Indication: MENTAL DISORDER
     Dosage: UNK, UNK
     Route: 048
  4. SEROQUEL [Concomitant]
     Indication: MENTAL DISORDER
     Dosage: UNK, UNK
     Route: 048

REACTIONS (1)
  - Feeling abnormal [Unknown]
